FAERS Safety Report 8161325-X (Version None)
Quarter: 2012Q1

REPORT INFORMATION
  Report Type: 
  Country: None (occurrence: None)
  Receive Date: 20120224
  Receipt Date: 20120215
  Transmission Date: 20120608
  Serious: Yes (Death, Hospitalization)
  Sender: FDA-Public Use
  Company Number: US-CELGENEUS-163-21880-12011382

PATIENT
  Sex: Female

DRUGS (22)
  1. GLUCOPHAGE [Concomitant]
     Route: 065
  2. CITRACAL + D [Concomitant]
     Route: 065
  3. GLYBURIDE [Concomitant]
     Route: 065
  4. ARANESP [Concomitant]
     Dates: start: 20111012
  5. DECADRON [Concomitant]
     Route: 065
  6. OXYCODONE HCL [Concomitant]
     Dosage: 5 MILLIGRAM
     Route: 065
  7. ARANESP [Concomitant]
     Dates: start: 20110622
  8. ARANESP [Concomitant]
     Dates: start: 20110928
  9. REVLIMID [Suspect]
     Dosage: 10 MILLIGRAM
     Route: 048
     Dates: start: 20110525, end: 20111120
  10. SYNTHROID [Concomitant]
     Route: 065
  11. ARANESP [Concomitant]
     Dates: start: 20110914
  12. METOPROLOL TARTRATE [Concomitant]
     Route: 065
  13. OXYCONTIN [Concomitant]
     Dosage: 10 MILLIGRAM
     Route: 065
  14. COUMADIN [Concomitant]
     Route: 065
     Dates: start: 20110525, end: 20111120
  15. OMEPRAZOLE [Concomitant]
     Route: 065
  16. DEXAMETHASONE [Concomitant]
     Indication: MULTIPLE MYELOMA
     Dosage: 40 MILLIGRAM
     Route: 065
  17. ARANESP [Concomitant]
     Dates: start: 20110608
  18. ARANESP [Concomitant]
     Dates: start: 20111026
  19. ARANESP [Concomitant]
     Dates: start: 20111109
  20. ACETAMINOPHEN [Concomitant]
     Route: 065
  21. FERROUS SULFATE TAB [Concomitant]
     Route: 065
  22. METFORMIN HCL [Concomitant]
     Route: 065

REACTIONS (6)
  - ASTHENIA [None]
  - MULTIPLE MYELOMA [None]
  - DEHYDRATION [None]
  - CONFUSIONAL STATE [None]
  - INTERNATIONAL NORMALISED RATIO INCREASED [None]
  - URINARY TRACT INFECTION [None]
